FAERS Safety Report 23732106 (Version 1)
Quarter: 2024Q2

REPORT INFORMATION
  Report Type: Spontaneous
  Country: US (occurrence: None)
  Receive Date: 20240410
  Receipt Date: 20240410
  Transmission Date: 20240716
  Serious: No
  Sender: FDA-Public Use
  Company Number: None

PATIENT
  Age: 53 Year
  Sex: Male

DRUGS (11)
  1. REPATHA [Suspect]
     Active Substance: EVOLOCUMAB
     Indication: Hypercholesterolaemia
     Dosage: FREQUENCY : MONTHLY;?
     Route: 058
     Dates: start: 20240314
  2. METOPROLOL [Concomitant]
     Active Substance: METOPROLOL
  3. RANOLAZINE [Concomitant]
     Active Substance: RANOLAZINE
  4. ISOSORBIDE [Concomitant]
     Active Substance: ISOSORBIDE
  5. ENTRESTO [Concomitant]
     Active Substance: SACUBITRIL\VALSARTAN
  6. CLOPIDOGREL [Concomitant]
     Active Substance: CLOPIDOGREL BISULFATE
  7. XARELTO [Concomitant]
     Active Substance: RIVAROXABAN
  8. ASPIRIN [Concomitant]
     Active Substance: ASPIRIN
  9. VITAMINS [Concomitant]
     Active Substance: VITAMINS
  10. NITROGLYCERIN [Concomitant]
     Active Substance: NITROGLYCERIN
  11. OMEGA 3 [Concomitant]
     Active Substance: CAPSAICIN

REACTIONS (5)
  - Myalgia [None]
  - Arthralgia [None]
  - Condition aggravated [None]
  - Joint swelling [None]
  - Sleep disorder [None]

NARRATIVE: CASE EVENT DATE: 20240327
